FAERS Safety Report 4553923-7 (Version None)
Quarter: 2005Q1

REPORT INFORMATION
  Report Type: 
  Country: None (occurrence: None)
  Receive Date: 20050118
  Receipt Date: 20041129
  Transmission Date: 20050727
  Serious: Yes (Hospitalization)
  Sender: FDA-Public Use
  Company Number: DE-MERCK-0412DEU00007

PATIENT
  Age: 66 Year
  Sex: Female
  Weight: 75 kg

DRUGS (5)
  1. VIOXX [Suspect]
     Indication: OSTEOARTHRITIS
     Route: 048
     Dates: start: 20040802, end: 20040901
  2. VIOXX [Suspect]
     Indication: SPINAL OSTEOARTHRITIS
     Route: 048
     Dates: start: 20040802, end: 20040901
  3. ATORVASTATIN CALCIUM [Concomitant]
     Route: 048
  4. ASPIRIN [Concomitant]
     Route: 048
  5. ESOMEPRAZOLE MAGNESIUM [Concomitant]
     Route: 048

REACTIONS (5)
  - BLOOD CHOLESTEROL INCREASED [None]
  - BLOOD LACTATE DEHYDROGENASE INCREASED [None]
  - BRAIN STEM ISCHAEMIA [None]
  - CEREBROVASCULAR ACCIDENT [None]
  - LOW DENSITY LIPOPROTEIN INCREASED [None]
